FAERS Safety Report 7269187-X (Version None)
Quarter: 2011Q1

REPORT INFORMATION
  Report Type: 
  Country: None (occurrence: None)
  Receive Date: 20110119
  Receipt Date: 20100520
  Transmission Date: 20110831
  Serious: No
  Sender: FDA-Public Use
  Company Number: AEUSA201000180

PATIENT
  Sex: Female
  Weight: 3 kg

DRUGS (1)
  1. HYPERTET [Suspect]
     Dosage: 250 IU; TOTAL; IM
     Route: 030
     Dates: start: 20100520, end: 20100520

REACTIONS (1)
  - WRONG DRUG ADMINISTERED [None]
